FAERS Safety Report 9222856 (Version 1)
Quarter: 2013Q2

REPORT INFORMATION
  Report Type: Spontaneous
  Country: US (occurrence: US)
  Receive Date: 20130410
  Receipt Date: 20130410
  Transmission Date: 20140414
  Serious: No
  Sender: FDA-Public Use
  Company Number: US-JNJFOC-20130400038

PATIENT
  Sex: Male
  Weight: 102.06 kg

DRUGS (4)
  1. DURAGESIC [Suspect]
     Indication: PAIN
     Dosage: TWO 25 UG/HR PATCHES
     Route: 062
     Dates: start: 1995
  2. UNSPECIFIED FENTANYL TRANSDERMAL SYSTEM [Suspect]
     Indication: PAIN
     Dosage: TWO 25 UG/HR PATCHES
     Route: 062
  3. DURAGESIC [Suspect]
     Indication: PAIN
     Dosage: TWO 25 UG/HR PATCHES
     Route: 062
  4. NICORANDIL [Concomitant]
     Indication: PAIN
     Route: 048
     Dates: start: 1995

REACTIONS (3)
  - Product quality issue [Unknown]
  - Drug ineffective [Recovered/Resolved]
  - Wrong technique in drug usage process [Not Recovered/Not Resolved]
